FAERS Safety Report 8481473-4 (Version None)
Quarter: 2012Q2

REPORT INFORMATION
  Report Type: 
  Country: None (occurrence: None)
  Receive Date: 20120619
  Receipt Date: 20120606
  Transmission Date: 20120825
  Serious: Yes (Other)
  Sender: FDA-Public Use
  Company Number: 2012SP031713

PATIENT
  Age: 18 Year
  Sex: Female
  Weight: 40 kg

DRUGS (2)
  1. CERAZETTE (DESOGESTREL /00754001/) [Suspect]
     Indication: CYST
     Dosage: QD;PO
     Route: 048
     Dates: start: 20120528
  2. CERAZETTE (DESOGESTREL /00754001/) [Suspect]
     Indication: MENSTRUAL CYCLE MANAGEMENT
     Dosage: QD;PO
     Route: 048
     Dates: start: 20120528

REACTIONS (6)
  - VOMITING [None]
  - NAUSEA [None]
  - WEIGHT DECREASED [None]
  - BLINDNESS TRANSIENT [None]
  - CHROMATURIA [None]
  - DECREASED APPETITE [None]
